APPROVED DRUG PRODUCT: PROPRANOLOL HYDROCHLORIDE AND HYDROCHLOROTHIAZIDE
Active Ingredient: HYDROCHLOROTHIAZIDE; PROPRANOLOL HYDROCHLORIDE
Strength: 25MG;80MG
Dosage Form/Route: TABLET;ORAL
Application: A070947 | Product #001
Applicant: RISING PHARMA HOLDINGS INC
Approved: Apr 1, 1987 | RLD: No | RS: No | Type: DISCN